FAERS Safety Report 11930173 (Version 1)
Quarter: 2016Q1

REPORT INFORMATION
  Report Type: Spontaneous
  Country: US (occurrence: None)
  Receive Date: 20160120
  Receipt Date: 20160120
  Transmission Date: 20160526
  Serious: Yes (Hospitalization)
  Sender: FDA-Public Use
  Company Number: None

PATIENT
  Age: 35 Year
  Sex: Male
  Weight: 108.8 kg

DRUGS (1)
  1. NIACIN (SLO-NIACIN) [Suspect]
     Active Substance: DIETARY SUPPLEMENT
     Indication: HYPERLIPIDAEMIA
     Route: 048
     Dates: start: 20141113, end: 20151008

REACTIONS (8)
  - Chest pain [None]
  - Hepatic steatosis [None]
  - Muscle abscess [None]
  - Hepatosplenomegaly [None]
  - Liver injury [None]
  - Abdominal pain [None]
  - Dyspnoea [None]
  - Chills [None]

NARRATIVE: CASE EVENT DATE: 20151004
